FAERS Safety Report 20311648 (Version 1)
Quarter: 2022Q1

REPORT INFORMATION
  Report Type: Report from Study
  Country: ES (occurrence: ES)
  Receive Date: 20220108
  Receipt Date: 20220108
  Transmission Date: 20220423
  Serious: Yes (Life-Threatening)
  Sender: FDA-Public Use
  Company Number: ES-Accord-249354

PATIENT
  Age: 55 Year
  Sex: Female

DRUGS (3)
  1. CISPLATIN [Suspect]
     Active Substance: CISPLATIN
     Indication: Adenocarcinoma gastric
  2. FLUOROURACIL [Suspect]
     Active Substance: FLUOROURACIL
     Indication: Adenocarcinoma gastric
  3. EPIRUBICIN [Suspect]
     Active Substance: EPIRUBICIN
     Indication: Adenocarcinoma gastric

REACTIONS (4)
  - Mucosal inflammation [Unknown]
  - Diarrhoea [Unknown]
  - Vomiting [Unknown]
  - Off label use [Unknown]
